FAERS Safety Report 9306096 (Version 2)
Quarter: 2013Q2

REPORT INFORMATION
  Report Type: Spontaneous
  Country: JP (occurrence: JP)
  Receive Date: 20130523
  Receipt Date: 20130606
  Transmission Date: 20140414
  Serious: Yes (Other)
  Sender: FDA-Public Use
  Company Number: JP-ELI_LILLY_AND_COMPANY-JP201305005127

PATIENT
  Age: 56 Year
  Sex: Female

DRUGS (5)
  1. CYMBALTA [Suspect]
     Indication: DEPRESSION POSTOPERATIVE
     Dosage: 20 MG, QD
     Route: 048
     Dates: start: 20130325, end: 20130326
  2. CYMBALTA [Suspect]
     Dosage: 40 MG, QD
     Route: 048
     Dates: start: 20130327, end: 20130409
  3. CYMBALTA [Suspect]
     Dosage: 60 MG, QD
     Route: 048
     Dates: start: 20130410, end: 20130430
  4. CYMBALTA [Suspect]
     Dosage: 30 MG, QD
     Route: 048
     Dates: start: 20130501, end: 20130507
  5. THYRADIN S [Concomitant]
     Indication: DEPRESSION POSTOPERATIVE
     Dosage: 25 UG, QD
     Route: 048
     Dates: start: 20130417

REACTIONS (3)
  - Loss of consciousness [Recovered/Resolved]
  - Dizziness postural [Recovered/Resolved]
  - Fall [Recovered/Resolved]
